FAERS Safety Report 9257868 (Version 2)
Quarter: 2013Q4

REPORT INFORMATION
  Report Type: Spontaneous
  Country: CN (occurrence: CN)
  Receive Date: 20130426
  Receipt Date: 20131230
  Transmission Date: 20140711
  Serious: Yes (Disabling)
  Sender: FDA-Public Use
  Company Number: CN-SANOFI-AVENTIS-2013SA040835

PATIENT
  Age: 60 Year
  Sex: Male
  Weight: 90 kg

DRUGS (5)
  1. PLAVIX [Suspect]
     Indication: CORONARY ARTERY DISEASE
     Route: 048
     Dates: start: 20121220
  2. ASPIRIN [Concomitant]
     Indication: PERCUTANEOUS CORONARY INTERVENTION
     Dosage: LONG TERM
     Route: 048
  3. ATORVASTATIN [Concomitant]
     Indication: PERCUTANEOUS CORONARY INTERVENTION
     Dosage: LONG TERM
     Route: 048
  4. FELODIPINE [Concomitant]
     Indication: HYPERTENSION
     Dosage: LONG TERM
     Route: 048
  5. TELMISARTAN [Concomitant]
     Indication: HYPERTENSION
     Dosage: LONG TERM
     Route: 048

REACTIONS (3)
  - Coronary artery restenosis [Not Recovered/Not Resolved]
  - Suspected counterfeit product [Unknown]
  - Drug ineffective [Unknown]
